FAERS Safety Report 19937351 (Version 1)
Quarter: 2021Q4

REPORT INFORMATION
  Report Type: Report from Study
  Country: None (occurrence: BR)
  Receive Date: 20211010
  Receipt Date: 20211010
  Transmission Date: 20220303
  Serious: Yes (Other)
  Sender: FDA-Public Use
  Company Number: BR-ABBVIE-21K-020-4111165-00

PATIENT
  Age: 59 Year
  Sex: Female

DRUGS (1)
  1. RINVOQ [Suspect]
     Active Substance: UPADACITINIB
     Indication: Rheumatoid arthritis
     Route: 048
     Dates: start: 20210526

REACTIONS (2)
  - Asthma [Unknown]
  - Malaise [Unknown]

NARRATIVE: CASE EVENT DATE: 20210901
